FAERS Safety Report 9371703 (Version 1)
Quarter: 2013Q2

REPORT INFORMATION
  Report Type: Spontaneous
  Country: US (occurrence: US)
  Receive Date: 20130627
  Receipt Date: 20130627
  Transmission Date: 20140414
  Serious: No
  Sender: FDA-Public Use
  Company Number: US-PFIZER INC-2013190370

PATIENT
  Age: 34 Year
  Sex: Female
  Weight: 145.13 kg

DRUGS (3)
  1. LYRICA [Suspect]
     Indication: FIBROMYALGIA
     Dosage: 150 MG, 3X/DAY
     Route: 048
     Dates: start: 2010
  2. SYNTHROID [Concomitant]
     Dosage: UNK
  3. COREG [Concomitant]
     Dosage: UNK

REACTIONS (1)
  - Swelling [Unknown]
